FAERS Safety Report 8555001-9 (Version None)
Quarter: 2012Q3

REPORT INFORMATION
  Report Type: 
  Country: None (occurrence: None)
  Receive Date: 20120731
  Receipt Date: 20120720
  Transmission Date: 20120928
  Serious: Yes (Other)
  Sender: FDA-Public Use
  Company Number: JP-009507513-2012SP033130

PATIENT

DRUGS (18)
  1. PEG-INTRON [Suspect]
     Indication: PRODUCT USED FOR UNKNOWN INDICATION
     Dosage: 80 ?G, UNKNOWN
     Route: 051
     Dates: start: 20120601
  2. REBETOL [Suspect]
     Indication: PRODUCT USED FOR UNKNOWN INDICATION
     Dosage: 600 MG, QD
     Route: 048
     Dates: start: 20120601
  3. ANTIVIRAL (UNSPECIFIED) [Suspect]
     Indication: PRODUCT USED FOR UNKNOWN INDICATION
     Dosage: 1500 MG, QD
     Route: 048
     Dates: start: 20120601
  4. LEVOTHYROXINE SODIUM [Concomitant]
     Dosage: 50 MG, ONCE
     Route: 048
  5. LEVOTHYROXINE SODIUM [Concomitant]
     Dosage: 25 MG ONCE
     Route: 048
  6. TELAVIC [Suspect]
     Indication: HEPATITIS C
     Route: 048
     Dates: start: 20120601, end: 20120606
  7. REBETOL [Suspect]
     Indication: HEPATITIS C
     Route: 048
     Dates: start: 20120601, end: 20120621
  8. TELAVIC [Suspect]
     Route: 048
     Dates: start: 20120607, end: 20120628
  9. LULICON [Concomitant]
     Route: 051
     Dates: start: 20120604
  10. PEG-INTRON [Suspect]
     Indication: HEPATITIS C
     Dosage: 80MCG/KG/WEEK
     Route: 058
     Dates: start: 20120601, end: 20120622
  11. ANTIVIRAL (UNSPECIFIED) [Suspect]
     Dosage: 750 MG, QD
     Route: 048
     Dates: start: 20120603
  12. EQUA [Concomitant]
     Route: 048
  13. REBETOL [Suspect]
     Route: 048
     Dates: start: 20120622, end: 20120628
  14. AMARYL [Concomitant]
     Route: 048
  15. METFORMIN HCL [Concomitant]
     Route: 048
  16. ASPARA CA [Concomitant]
     Route: 048
  17. VITAMIN B12 [Concomitant]
     Dosage: 1500 MICROGRAM, ONCE
     Route: 048
  18. PRAVASTATIN [Concomitant]
     Route: 048

REACTIONS (7)
  - DIZZINESS [None]
  - RASH [None]
  - NAUSEA [None]
  - DECREASED APPETITE [None]
  - HYPERURICAEMIA [None]
  - ANAEMIA [None]
  - MALAISE [None]
